FAERS Safety Report 24938105 (Version 1)
Quarter: 2025Q1

REPORT INFORMATION
  Report Type: Spontaneous
  Country: GB (occurrence: GB)
  Receive Date: 20250206
  Receipt Date: 20250206
  Transmission Date: 20250408
  Serious: Yes (Other)
  Sender: ELI LILLY AND COMPANY
  Company Number: None

PATIENT
  Age: 28 Year
  Sex: Female
  Weight: 98 kg

DRUGS (2)
  1. MOUNJARO [Suspect]
     Active Substance: TIRZEPATIDE
     Indication: Weight control
     Dosage: 2.5 MG, WEEKLY (1/W)
     Route: 065
     Dates: start: 20250125
  2. CIMIZT [Concomitant]
     Indication: Post coital contraception
     Dates: start: 20200104

REACTIONS (2)
  - Tachycardia [Not Recovered/Not Resolved]
  - Allodynia [Not Recovered/Not Resolved]

NARRATIVE: CASE EVENT DATE: 20250125
